FAERS Safety Report 8437729-4 (Version None)
Quarter: 2012Q2

REPORT INFORMATION
  Report Type: 
  Country: None (occurrence: None)
  Receive Date: 20120614
  Receipt Date: 20120307
  Transmission Date: 20120825
  Serious: No
  Sender: FDA-Public Use
  Company Number: US-GLAXOSMITHKLINE-A0968965A

PATIENT
  Age: 44 Year
  Sex: Male

DRUGS (1)
  1. NICORETTE [Suspect]
     Indication: EX-TOBACCO USER
     Dates: start: 20120306, end: 20120307

REACTIONS (3)
  - SENSATION OF FOREIGN BODY [None]
  - PHARYNGEAL OEDEMA [None]
  - OROPHARYNGEAL DISCOMFORT [None]
